FAERS Safety Report 7777554-0 (Version None)
Quarter: 2011Q3

REPORT INFORMATION
  Report Type: 
  Country: None (occurrence: None)
  Receive Date: 20110926
  Receipt Date: 20110913
  Transmission Date: 20111222
  Serious: No
  Sender: FDA-Public Use
  Company Number: US-B.I. PHARMACEUTICALS,INC./RIDGEFIELD-2011-BP-22152BP

PATIENT
  Age: 71 Year
  Sex: Male

DRUGS (8)
  1. DIGOXIN [Concomitant]
     Indication: CARDIAC FAILURE CONGESTIVE
  2. FLOMAX [Concomitant]
     Indication: PROSTATIC DISORDER
     Route: 048
  3. DIGOXIN [Concomitant]
     Indication: ATRIAL FIBRILLATION
     Route: 048
  4. MAVIK [Concomitant]
     Indication: HYPERTENSION
     Route: 048
  5. PRADAXA [Suspect]
     Indication: ATRIAL FIBRILLATION
     Dosage: 300 MG
     Route: 048
     Dates: start: 20110201
  6. LEVOXYL [Concomitant]
     Indication: THYROID DISORDER
     Route: 048
  7. SOTALOL HCL [Concomitant]
     Indication: ATRIAL FIBRILLATION
     Route: 048
  8. INSPRA [Concomitant]
     Indication: HYPERTENSION
     Route: 048

REACTIONS (1)
  - IRRITABILITY [None]
